FAERS Safety Report 5441642-4 (Version None)
Quarter: 2007Q3

REPORT INFORMATION
  Report Type: 
  Country: None (occurrence: None)
  Receive Date: 20070904
  Receipt Date: 20070823
  Transmission Date: 20080115
  Serious: Yes (Hospitalization)
  Sender: FDA-Public Use
  Company Number: JP-SANOFI-SYNTHELABO-A01200708783

PATIENT
  Sex: Female

DRUGS (12)
  1. ESTAZOLAM [Concomitant]
     Indication: INSOMNIA
     Route: 048
     Dates: start: 20070310, end: 20070406
  2. ESTAZOLAM [Concomitant]
     Indication: RESTLESSNESS
     Route: 048
     Dates: start: 20070310, end: 20070406
  3. ZOLPIDEM [Concomitant]
     Indication: INSOMNIA
     Route: 048
     Dates: start: 20070310, end: 20070406
  4. ZOLPIDEM [Concomitant]
     Indication: RESTLESSNESS
     Route: 048
     Dates: start: 20070310, end: 20070406
  5. SILECE [Concomitant]
     Indication: INSOMNIA
     Route: 048
     Dates: start: 20070310, end: 20070406
  6. SILECE [Concomitant]
     Indication: RESTLESSNESS
     Route: 048
     Dates: start: 20070310, end: 20070406
  7. TOKAKU-JOKI-TO [Suspect]
     Indication: PSYCHIATRIC SYMPTOM
     Route: 048
     Dates: start: 20070310, end: 20070323
  8. TOKAKU-JOKI-TO [Suspect]
     Indication: CONSTIPATION
     Route: 048
     Dates: start: 20070310, end: 20070323
  9. PENTAZOCINE LACTATE [Suspect]
     Dosage: UNK
     Route: 065
  10. PENTAZOCINE LACTATE [Suspect]
     Indication: DRUG DEPENDENCE
     Dosage: UNK
     Route: 065
  11. PENTAZOCINE LACTATE [Suspect]
     Dosage: 30 TO 150MG DAILY (DIVIDED IN 1-10 DOSES)
     Route: 030
     Dates: start: 20070307, end: 20070323
  12. PENTAZOCINE LACTATE [Suspect]
     Dosage: 30 TO 150MG DAILY (DIVIDED IN 1-10 DOSES)
     Route: 030
     Dates: start: 20070307, end: 20070323

REACTIONS (4)
  - AGGRESSION [None]
  - CONSTIPATION [None]
  - DRUG TOXICITY [None]
  - GENITAL HAEMORRHAGE [None]
